FAERS Safety Report 16085693 (Version 2)
Quarter: 2019Q1

REPORT INFORMATION
  Report Type: Spontaneous
  Country: GB (occurrence: GB)
  Receive Date: 20190318
  Receipt Date: 20190322
  Transmission Date: 20190418
  Serious: Yes (Death, Hospitalization)
  Sender: FDA-Public Use
  Company Number: GB-BAYER-2018-196290

PATIENT
  Age: 71 Year
  Sex: Male

DRUGS (1)
  1. NEXAVAR [Suspect]
     Active Substance: SORAFENIB
     Indication: COLON CANCER
     Dosage: UNK
     Dates: start: 201008, end: 2017

REACTIONS (4)
  - Product use in unapproved indication [None]
  - Hospitalisation [None]
  - Off label use [None]
  - Death [Fatal]

NARRATIVE: CASE EVENT DATE: 20171223
